FAERS Safety Report 11523696 (Version 1)
Quarter: 2015Q3

REPORT INFORMATION
  Report Type: Spontaneous
  Country: US (occurrence: US)
  Receive Date: 20150903
  Receipt Date: 20150903
  Transmission Date: 20151125
  Serious: No
  Sender: FDA-Public Use
  Company Number: US-ELI_LILLY_AND_COMPANY-US201303002001

PATIENT
  Age: 12 Year
  Sex: Female

DRUGS (1)
  1. CYMBALTA [Suspect]
     Active Substance: DULOXETINE HYDROCHLORIDE
     Indication: ANXIETY
     Dosage: 30 MG, QD

REACTIONS (6)
  - Wrong technique in product usage process [Unknown]
  - Irritability [Not Recovered/Not Resolved]
  - Epistaxis [Not Recovered/Not Resolved]
  - Tic [Not Recovered/Not Resolved]
  - Anxiety [Not Recovered/Not Resolved]
  - Drug withdrawal syndrome [Not Recovered/Not Resolved]
